FAERS Safety Report 10360938 (Version 2)
Quarter: 2014Q3

REPORT INFORMATION
  Report Type: Spontaneous
  Country: DK (occurrence: DK)
  Receive Date: 20140804
  Receipt Date: 20140819
  Transmission Date: 20150326
  Serious: Yes (Hospitalization)
  Sender: FDA-Public Use
  Company Number: DK-PFIZER INC-2014215564

PATIENT
  Age: 47 Year
  Sex: Female

DRUGS (4)
  1. KALEORID [Concomitant]
     Active Substance: POTASSIUM CHLORIDE
     Indication: MINERAL SUPPLEMENTATION
  2. PROVERA [Suspect]
     Active Substance: MEDROXYPROGESTERONE ACETATE
     Indication: AMENORRHOEA
     Dosage: 10 MG (STRENGTH 5 MG), 1X/DAY
     Route: 048
     Dates: start: 20140505, end: 20140518
  3. FLUOXETIN ACTAVIS [Concomitant]
     Active Substance: FLUOXETINE HYDROCHLORIDE
     Indication: DEPRESSION
  4. LANSOPRAZOL ^ORIFARM^ [Concomitant]
     Indication: GASTRIC PH DECREASED

REACTIONS (4)
  - Hepatic failure [Recovering/Resolving]
  - Pruritus generalised [Recovering/Resolving]
  - Musculoskeletal chest pain [Recovering/Resolving]
  - Nausea [Recovering/Resolving]

NARRATIVE: CASE EVENT DATE: 20140512
